FAERS Safety Report 7411221-8 (Version None)
Quarter: 2011Q2

REPORT INFORMATION
  Report Type: 
  Country: None (occurrence: None)
  Receive Date: 20110413
  Receipt Date: 20100514
  Transmission Date: 20111010
  Serious: Yes (Other)
  Sender: FDA-Public Use
  Company Number: US-BRISTOL-MYERS SQUIBB COMPANY-15052327

PATIENT
  Age: 66 Year
  Sex: Male

DRUGS (5)
  1. BENADRYL [Concomitant]
     Indication: PREMEDICATION
     Route: 042
  2. FOLIC ACID [Suspect]
     Indication: COLON CANCER
     Dosage: ALSO ON 24MAR2010. VIA MEDIPORT
     Route: 042
     Dates: start: 20100303
  3. FLUOROURACIL [Suspect]
     Indication: COLON CANCER
     Dosage: ALSO ON 24MAR2010 VIA MEDIPORT
     Route: 042
     Dates: start: 20100303
  4. IRINOTECAN HCL [Suspect]
     Indication: COLON CANCER
     Dosage: ALSO ON 24MAR2010 VIA MEDIPORT
     Dates: start: 20100303
  5. ERBITUX [Suspect]
     Indication: COLON CANCER
     Dosage: DAILY DOSE 800 MG
     Route: 042
     Dates: start: 20100326, end: 20100326

REACTIONS (3)
  - DYSPNOEA [None]
  - FLUSHING [None]
  - HYPOTENSION [None]
